FAERS Safety Report 9975962 (Version 1)
Quarter: 2014Q1

REPORT INFORMATION
  Report Type: Spontaneous
  Country: US (occurrence: US)
  Receive Date: 20140306
  Receipt Date: 20140306
  Transmission Date: 20141002
  Serious: Yes (Congenital Anomaly, Other)
  Sender: FDA-Public Use
  Company Number: US-ABBVIE-14P-163-1206838-00

PATIENT
  Sex: Female

DRUGS (1)
  1. DEPAKOTE [Suspect]
     Indication: MATERNAL EXPOSURE TIMING UNSPECIFIED
     Route: 064

REACTIONS (18)
  - Pain [Unknown]
  - Cognitive disorder [Unknown]
  - Foetal exposure during pregnancy [Unknown]
  - Abnormal behaviour [Unknown]
  - Memory impairment [Unknown]
  - Nervous system disorder [Unknown]
  - Motor developmental delay [Unknown]
  - Impaired gastric emptying [Unknown]
  - Autism spectrum disorder [Unknown]
  - Speech disorder developmental [Unknown]
  - Mental impairment [Unknown]
  - Social problem [Unknown]
  - Activities of daily living impaired [Unknown]
  - Impaired self-care [Unknown]
  - Emotional distress [Unknown]
  - Injury [Unknown]
  - Anhedonia [Unknown]
  - Loss of employment [Unknown]
